APPROVED DRUG PRODUCT: LANSOPRAZOLE
Active Ingredient: LANSOPRAZOLE
Strength: 15MG
Dosage Form/Route: CAPSULE, DELAYED REL PELLETS;ORAL
Application: A203187 | Product #001
Applicant: MYLAN PHARMACEUTICALS INC
Approved: Jun 1, 2016 | RLD: No | RS: No | Type: DISCN